FAERS Safety Report 12315605 (Version 1)
Quarter: 2016Q2

REPORT INFORMATION
  Report Type: Spontaneous
  Country: CA (occurrence: CA)
  Receive Date: 20160428
  Receipt Date: 20160428
  Transmission Date: 20160815
  Serious: Yes (Hospitalization, Other)
  Sender: FDA-Public Use
  Company Number: CA-ACTELION-A-NJ2016-135207

PATIENT
  Age: 63 Year
  Sex: Female

DRUGS (14)
  1. CARIPUL [Suspect]
     Active Substance: EPOPROSTENOL
     Indication: PULMONARY ARTERIAL HYPERTENSION
     Dosage: 30000 NG/ML, UNK
     Route: 042
     Dates: start: 20150518
  2. TYLENOL WITH CODEINE [Concomitant]
     Active Substance: ACETAMINOPHEN\CODEINE PHOSPHATE
  3. SYNTHROID [Concomitant]
     Active Substance: LEVOTHYROXINE SODIUM
  4. ENTERIC ASPIRIN [Concomitant]
     Active Substance: ASPIRIN
  5. LOTRIDERM [Concomitant]
     Active Substance: BETAMETHASONE DIPROPIONATE\CLOTRIMAZOLE
  6. RAMIPRIL. [Concomitant]
     Active Substance: RAMIPRIL
  7. IMODIUM [Concomitant]
     Active Substance: LOPERAMIDE HYDROCHLORIDE
  8. IRON [Concomitant]
     Active Substance: IRON
  9. POTASSIUM [Concomitant]
     Active Substance: POTASSIUM
  10. LORATADINE. [Concomitant]
     Active Substance: LORATADINE
  11. SALVENT [Concomitant]
     Active Substance: ALBUTEROL
  12. TIOTROPIUM [Concomitant]
     Active Substance: TIOTROPIUM
  13. ADCIRCA [Concomitant]
     Active Substance: TADALAFIL
  14. FLOVENT [Concomitant]
     Active Substance: FLUTICASONE PROPIONATE

REACTIONS (6)
  - Blood iron decreased [Not Recovered/Not Resolved]
  - Impaired self-care [Not Recovered/Not Resolved]
  - Asthenia [Not Recovered/Not Resolved]
  - Blood potassium decreased [Not Recovered/Not Resolved]
  - Intestinal polypectomy [Not Recovered/Not Resolved]
  - Haemorrhage [Not Recovered/Not Resolved]

NARRATIVE: CASE EVENT DATE: 20160310
